FAERS Safety Report 23654413 (Version 2)
Quarter: 2024Q1

REPORT INFORMATION
  Report Type: Spontaneous
  Country: US (occurrence: US)
  Receive Date: 20240320
  Receipt Date: 20240326
  Transmission Date: 20240410
  Serious: Yes (Other)
  Sender: FDA-Public Use
  Company Number: US-BRISTOL-MYERS SQUIBB COMPANY-2024-042835

PATIENT
  Age: 85 Year
  Sex: Male

DRUGS (1)
  1. LENALIDOMIDE [Suspect]
     Active Substance: LENALIDOMIDE
     Indication: Plasma cell myeloma
     Dosage: FREQUENCY: TAKE 1 CAPSULE (10MG TOTAL) BY MOUTH EVERY DAY FOR 21 DAYS AND OFF FOR 7 DAYS
     Route: 048

REACTIONS (2)
  - Drug ineffective [Recovering/Resolving]
  - Full blood count abnormal [Recovering/Resolving]
